FAERS Safety Report 14527153 (Version 3)
Quarter: 2018Q2

REPORT INFORMATION
  Report Type: Spontaneous
  Country: KZ (occurrence: KZ)
  Receive Date: 20180213
  Receipt Date: 20180529
  Transmission Date: 20180711
  Serious: Yes (Other)
  Sender: FDA-Public Use
  Company Number: KZ-INCYTE CORPORATION-2018IN001219

PATIENT

DRUGS (3)
  1. JAKAVI [Suspect]
     Active Substance: RUXOLITINIB
     Indication: PRODUCT USED FOR UNKNOWN INDICATION
     Dosage: UNK
     Route: 065
  2. VALSARTAN. [Concomitant]
     Active Substance: VALSARTAN
     Indication: PRODUCT USED FOR UNKNOWN INDICATION
     Dosage: UNK
     Route: 065
  3. TASIGNA [Suspect]
     Active Substance: NILOTINIB
     Indication: CHRONIC MYELOID LEUKAEMIA
     Dosage: 3 DF, QD
     Route: 065

REACTIONS (13)
  - Myocardial infarction [Unknown]
  - Pallor [Unknown]
  - Hyperhidrosis [Unknown]
  - White blood cell count increased [Unknown]
  - Fatigue [Unknown]
  - Ascites [Unknown]
  - Dyspnoea [Unknown]
  - Ischaemic stroke [Unknown]
  - Cold sweat [Unknown]
  - Chest discomfort [Unknown]
  - Angina pectoris [Unknown]
  - Musculoskeletal pain [Unknown]
  - Oedema peripheral [Unknown]

NARRATIVE: CASE EVENT DATE: 2016
